FAERS Safety Report 19179795 (Version 1)
Quarter: 2021Q2

REPORT INFORMATION
  Report Type: Spontaneous
  Country: US (occurrence: US)
  Receive Date: 20210424
  Receipt Date: 20210424
  Transmission Date: 20210717
  Serious: Yes (Other)
  Sender: FDA-Public Use
  Company Number: None

PATIENT
  Age: 42 Year
  Sex: Female
  Weight: 232.65 kg

DRUGS (14)
  1. NORETHINDRONE. [Suspect]
     Active Substance: NORETHINDRONE
     Indication: AMENORRHOEA
     Dosage: ?          QUANTITY:10 DF DOSAGE FORM;?
     Route: 048
     Dates: start: 20210420, end: 20210423
  2. AMOX?CLAV [Concomitant]
     Active Substance: AMOXICILLIN\CLAVULANATE POTASSIUM
  3. WOMEN^S MULTIVITAMIN [Concomitant]
  4. CALCIUM CITRATE [Concomitant]
     Active Substance: CALCIUM CITRATE
  5. MELATONIN [Concomitant]
     Active Substance: MELATONIN
  6. BUSPIRONE [Concomitant]
     Active Substance: BUSPIRONE HYDROCHLORIDE
  7. VITAMIN B12 [Concomitant]
     Active Substance: CYANOCOBALAMIN
  8. SERTRALINE [Concomitant]
     Active Substance: SERTRALINE HYDROCHLORIDE
  9. VITAMIN D3 [Concomitant]
     Active Substance: CHOLECALCIFEROL
  10. OMEPRAZOLE. [Concomitant]
     Active Substance: OMEPRAZOLE
  11. AFRIN [Concomitant]
     Active Substance: OXYMETAZOLINE
  12. OXYBUTYNIN ER [Concomitant]
     Active Substance: OXYBUTYNIN
  13. VYVANSE [Concomitant]
     Active Substance: LISDEXAMFETAMINE DIMESYLATE
  14. GENERIC SUDAFED (PHENYLEPHRINE) [Concomitant]

REACTIONS (8)
  - Ocular discomfort [None]
  - Body temperature increased [None]
  - Decreased appetite [None]
  - Disturbance in attention [None]
  - Fatigue [None]
  - Dizziness [None]
  - Presyncope [None]
  - Abdominal discomfort [None]

NARRATIVE: CASE EVENT DATE: 20210423
